FAERS Safety Report 12215337 (Version 1)
Quarter: 2016Q1

REPORT INFORMATION
  Report Type: Report from Study
  Country: CA (occurrence: CA)
  Receive Date: 20160328
  Receipt Date: 20160328
  Transmission Date: 20160526
  Serious: Yes (Hospitalization, Other)
  Sender: FDA-Public Use
  Company Number: CA-GILEAD-2016-0193722

PATIENT
  Age: 10 Year
  Sex: Male
  Weight: 29 kg

DRUGS (11)
  1. COTAZYM                            /00014701/ [Concomitant]
     Route: 048
  2. PULMOZYME [Concomitant]
     Active Substance: DORNASE ALFA
     Dosage: 2.5 MG, QD
     Route: 055
  3. TOBI [Concomitant]
     Active Substance: TOBRAMYCIN
     Dosage: 300 MG, ALT MONTHS
     Route: 055
  4. AZITHROMYCIN ANHYDROUS. [Concomitant]
     Active Substance: AZITHROMYCIN ANHYDROUS
     Dosage: 250 MG, QD
     Route: 048
  5. VENTOLIN [Concomitant]
     Active Substance: ALBUTEROL SULFATE
     Dosage: 2 PUFFS BID
     Route: 055
  6. VITAMIN D [Concomitant]
     Active Substance: CHOLECALCIFEROL
     Dosage: 2000 IU, QD
  7. ADVAIR HFA [Concomitant]
     Active Substance: FLUTICASONE PROPIONATE\SALMETEROL XINAFOATE
     Dosage: 125
  8. AZTREONAM LYSINE [Suspect]
     Active Substance: AZTREONAM LYSINE
     Indication: CYSTIC FIBROSIS
     Dosage: UNK
     Route: 055
     Dates: start: 201501, end: 201511
  9. TOBI [Concomitant]
     Active Substance: TOBRAMYCIN
     Dosage: 300 MG, CONTINUOUSLY
     Route: 055
  10. CREON 10 MINIMICROSPHERES [Concomitant]
     Active Substance: PANCRELIPASE AMYLASE\PANCRELIPASE LIPASE\PANCRELIPASE PROTEASE
     Route: 048
  11. MV [Concomitant]
     Dosage: 1.5 ML PER DAY

REACTIONS (4)
  - Cough [Unknown]
  - Infective pulmonary exacerbation of cystic fibrosis [Recovering/Resolving]
  - Drug ineffective [Recovered/Resolved]
  - Sputum increased [Unknown]

NARRATIVE: CASE EVENT DATE: 20150915
